FAERS Safety Report 10360059 (Version 2)
Quarter: 2014Q3

REPORT INFORMATION
  Report Type: Spontaneous
  Country: US (occurrence: US)
  Receive Date: 20140804
  Receipt Date: 20140926
  Transmission Date: 20150326
  Serious: Yes (Hospitalization)
  Sender: FDA-Public Use
  Company Number: US-BAYER-2014-113458

PATIENT
  Age: 27 Year
  Sex: Female
  Weight: 69.39 kg

DRUGS (7)
  1. TYLENOL EXTRA STRENGTH [Concomitant]
     Active Substance: ACETAMINOPHEN
  2. ADDERALL [Concomitant]
     Active Substance: AMPHETAMINE ASPARTATE\AMPHETAMINE SULFATE\DEXTROAMPHETAMINE SACCHARATE\DEXTROAMPHETAMINE SULFATE
     Indication: ATTENTION DEFICIT/HYPERACTIVITY DISORDER
     Dosage: UNK
     Route: 048
     Dates: start: 201207
  3. FLEXAR [Concomitant]
     Indication: BACK PAIN
     Dosage: UNK
     Route: 048
     Dates: start: 201204, end: 201210
  4. IBUPROFEN. [Concomitant]
     Active Substance: IBUPROFEN
  5. TRAMADOL [Concomitant]
     Active Substance: TRAMADOL
     Indication: PAIN
  6. MIRENA [Suspect]
     Active Substance: LEVONORGESTREL
     Indication: CONTRACEPTION
     Dosage: 20 MCG/24HR, CONT
     Route: 015
     Dates: start: 20120706, end: 20130108
  7. LORTAB [Concomitant]
     Active Substance: ACETAMINOPHEN\HYDROCODONE BITARTRATE
     Indication: ADNEXA UTERI PAIN
     Dosage: UNK
     Route: 048
     Dates: start: 20120926

REACTIONS (9)
  - Emotional distress [None]
  - Pelvic pain [None]
  - Dysmenorrhoea [None]
  - Anxiety [None]
  - Device difficult to use [None]
  - Injury [None]
  - Medical device discomfort [None]
  - Uterine perforation [None]
  - Depression [None]

NARRATIVE: CASE EVENT DATE: 20121231
